FAERS Safety Report 15317697 (Version 1)
Quarter: 2018Q3

REPORT INFORMATION
  Report Type: Spontaneous
  Country: US (occurrence: US)
  Receive Date: 20180824
  Receipt Date: 20180824
  Transmission Date: 20181010
  Serious: Yes (Hospitalization)
  Sender: FDA-Public Use
  Company Number: US-ALLERGAN-1840892US

PATIENT
  Age: 44 Year
  Sex: Female
  Weight: 51.25 kg

DRUGS (1)
  1. BOTOX [Suspect]
     Active Substance: ONABOTULINUMTOXINA
     Indication: MIGRAINE
     Dosage: UNK, SINGLE
     Route: 030
     Dates: start: 2012, end: 2012

REACTIONS (7)
  - Arnold-Chiari malformation [Recovered/Resolved]
  - Pigmentation disorder [Recovered/Resolved]
  - Hypersensitivity [Not Recovered/Not Resolved]
  - Skin swelling [Recovered/Resolved]
  - Injection site urticaria [Recovered/Resolved]
  - Malaise [Unknown]
  - Scar [Not Recovered/Not Resolved]

NARRATIVE: CASE EVENT DATE: 2012
